FAERS Safety Report 8132784-3 (Version None)
Quarter: 2012Q1

REPORT INFORMATION
  Report Type: 
  Country: None (occurrence: None)
  Receive Date: 20120207
  Receipt Date: 20120201
  Transmission Date: 20120608
  Serious: Yes (Death)
  Sender: FDA-Public Use
  Company Number: 2011MA016018

PATIENT
  Age: 72 Year
  Sex: Female

DRUGS (12)
  1. FUROSEMIDE [Concomitant]
  2. ESCITALOPRAM OXALATE [Suspect]
     Indication: SCHIZOAFFECTIVE DISORDER
     Dosage: 30 MG;QD;PO
     Route: 048
     Dates: end: 20111023
  3. FERRO DURETTER [Concomitant]
  4. ALPRAZOLAM [Concomitant]
  5. ZIPRASIDONE HYDROCHLORIDE [Suspect]
     Indication: SCHIZOAFFECTIVE DISORDER
     Dosage: 40 MG;BID;PO
     Route: 048
     Dates: end: 20111023
  6. MIRTAZAPINE [Suspect]
     Indication: SCHIZOAFFECTIVE DISORDER
     Dosage: 30 MG;QD;PO
     Route: 048
     Dates: end: 20111023
  7. CENTYL MED [Concomitant]
  8. KALIUMKLORID [Concomitant]
  9. AMLODIPINE [Concomitant]
  10. MIRTAZAPINE [Suspect]
     Indication: SCHIZOAFFECTIVE DISORDER
     Dosage: 30 MG;QD;PO
     Route: 048
     Dates: end: 20111023
  11. LITHIUM CITRATE [Suspect]
     Indication: SCHIZOAFFECTIVE DISORDER
     Dosage: 6 MMOL;PO
     Route: 048
     Dates: end: 20111023
  12. FRAGMIN [Concomitant]

REACTIONS (11)
  - NEUROLEPTIC MALIGNANT SYNDROME [None]
  - PYREXIA [None]
  - HUMERUS FRACTURE [None]
  - RHABDOMYOLYSIS [None]
  - RENAL FAILURE [None]
  - OSTEOSYNTHESIS [None]
  - HYPERTENSION [None]
  - ORGAN FAILURE [None]
  - DYSPNOEA [None]
  - FALL [None]
  - LACTIC ACIDOSIS [None]
